FAERS Safety Report 4480508-3 (Version None)
Quarter: 2004Q3

REPORT INFORMATION
  Report Type: 
  Country: None (occurrence: None)
  Receive Date: 20040923
  Receipt Date: 20040913
  Transmission Date: 20050211
  Serious: Yes (Hospitalization)
  Sender: FDA-Public Use
  Company Number: 2004-03009

PATIENT
  Age: 54 Year
  Sex: Male

DRUGS (1)
  1. IMMUCYST (BCG - IT (CONNAUGHT)) [Suspect]
     Indication: BLADDER CANCER
     Dosage: 81.0 MG, I. VES.
     Dates: start: 20040729, end: 20040807

REACTIONS (6)
  - CYSTOSCOPY ABNORMAL [None]
  - DYSURIA [None]
  - HAEMATURIA [None]
  - POST PROCEDURAL HAEMORRHAGE [None]
  - RASH [None]
  - URINARY RETENTION [None]
